FAERS Safety Report 4573627-4 (Version None)
Quarter: 2005Q1

REPORT INFORMATION
  Report Type: 
  Country: None (occurrence: None)
  Receive Date: 20050203
  Receipt Date: 20050131
  Transmission Date: 20050727
  Serious: Yes (Hospitalization, Other)
  Sender: FDA-Public Use
  Company Number: FR-2004-030032

PATIENT
  Age: 90 Year
  Sex: Female

DRUGS (5)
  1. SOTALOL HCL [Suspect]
     Indication: HYPERTENSION
     Dosage: SEE IMAGE
     Route: 048
     Dates: end: 20040528
  2. SOTALOL HCL [Suspect]
     Indication: HYPERTENSION
     Dosage: SEE IMAGE
     Route: 048
     Dates: start: 20040528, end: 20040531
  3. KARDEGIC   /FRA/ (ACETYLSALICYLATE LYSINE) [Concomitant]
  4. OMEPRAZOLE [Concomitant]
  5. OLMIFON (ADRAFINIL) [Concomitant]

REACTIONS (4)
  - ATRIOVENTRICULAR BLOCK COMPLETE [None]
  - ATRIOVENTRICULAR BLOCK SECOND DEGREE [None]
  - DIFFICULTY IN WALKING [None]
  - GAIT DISTURBANCE [None]
